FAERS Safety Report 15666737 (Version 1)
Quarter: 2018Q4

REPORT INFORMATION
  Report Type: Spontaneous
  Country: US (occurrence: US)
  Receive Date: 20181128
  Receipt Date: 20181128
  Transmission Date: 20190205
  Serious: No
  Sender: FDA-Public Use
  Company Number: US-ROCHE-2121719

PATIENT
  Sex: Female
  Weight: 79.45 kg

DRUGS (1)
  1. OCREVUS [Suspect]
     Active Substance: OCRELIZUMAB
     Indication: PRODUCT USED FOR UNKNOWN INDICATION
     Dosage: ON 17/JAN/2018, SHE RECEIVED THE SECOND INFUSION.
     Route: 065
     Dates: start: 20180103

REACTIONS (4)
  - Muscular weakness [Not Recovered/Not Resolved]
  - Finger deformity [Not Recovered/Not Resolved]
  - Hand deformity [Not Recovered/Not Resolved]
  - Musculoskeletal stiffness [Not Recovered/Not Resolved]
